FAERS Safety Report 4773938-3 (Version None)
Quarter: 2005Q3

REPORT INFORMATION
  Report Type: 
  Country: None (occurrence: None)
  Receive Date: 20050920
  Receipt Date: 20050707
  Transmission Date: 20060218
  Serious: No
  Sender: FDA-Public Use
  Company Number: PHBS2005JP09900

PATIENT
  Age: 74 Year
  Sex: Male
  Weight: 73 kg

DRUGS (4)
  1. DIOVAN [Suspect]
     Dosage: 80 MG/DAY
     Route: 048
     Dates: start: 20030131, end: 20030730
  2. ISOSORBIDE MONONITRATE [Concomitant]
     Dosage: 40 MG, UNK
     Route: 048
     Dates: start: 19980101
  3. NORVASC [Concomitant]
     Dosage: 5 MG, UNK
     Route: 048
     Dates: start: 19980101
  4. SIGMART [Concomitant]
     Dosage: 10 MG, UNK
     Route: 048
     Dates: start: 19980101

REACTIONS (2)
  - CRACKLES LUNG [None]
  - PULMONARY FIBROSIS [None]
